FAERS Safety Report 7462308-5 (Version None)
Quarter: 2011Q2

REPORT INFORMATION
  Report Type: 
  Country: None (occurrence: None)
  Receive Date: 20110506
  Receipt Date: 20110502
  Transmission Date: 20111010
  Serious: Yes (Hospitalization)
  Sender: FDA-Public Use
  Company Number: US-ABBOTT-11P-163-0723411-00

PATIENT
  Sex: Female
  Weight: 69.916 kg

DRUGS (12)
  1. AMITRIPTYLINE [Concomitant]
     Indication: MYALGIA
  2. HYDROCODONE BITARTRATE [Concomitant]
     Indication: PAIN
     Dosage: WEANING OFF
  3. FENTANYL [Concomitant]
     Indication: PAIN
     Dosage: WEANING OFF
  4. TRAZODONE [Concomitant]
     Indication: INSOMNIA
  5. AMITRIPTYLINE [Concomitant]
     Indication: DEPRESSION
  6. CYMBALTA [Concomitant]
     Indication: DEPRESSION
  7. PRENATAL VITAMINS [Concomitant]
     Indication: PRODUCT USED FOR UNKNOWN INDICATION
  8. CALCIUM [Concomitant]
     Indication: PRODUCT USED FOR UNKNOWN INDICATION
  9. LUPRON DEPOT [Suspect]
     Indication: ENDOMETRIOSIS
     Dosage: BEGIN OF FEB 2011 - 2ND INJECTION
     Route: 058
     Dates: end: 20110201
  10. DILAUDID [Suspect]
     Indication: PAIN
     Dates: start: 20110201, end: 20110201
  11. CYMBALTA [Concomitant]
     Indication: MYALGIA
  12. ALPRAZOLAM [Concomitant]
     Indication: ANXIETY

REACTIONS (13)
  - AUTOIMMUNE DISORDER [None]
  - MYALGIA [None]
  - ABASIA [None]
  - AFFECT LABILITY [None]
  - DEPRESSION [None]
  - ACTIVITIES OF DAILY LIVING IMPAIRED [None]
  - SOMNOLENCE [None]
  - NIGHT SWEATS [None]
  - FIBROMYALGIA [None]
  - LOSS OF CONSCIOUSNESS [None]
  - MOOD ALTERED [None]
  - ARTHRALGIA [None]
  - MOBILITY DECREASED [None]
